FAERS Safety Report 8002980-4 (Version None)
Quarter: 2011Q4

REPORT INFORMATION
  Report Type: 
  Country: None (occurrence: None)
  Receive Date: 20111222
  Receipt Date: 20110624
  Transmission Date: 20120403
  Serious: No
  Sender: FDA-Public Use
  Company Number: US-GLAXOSMITHKLINE-A0932934A

PATIENT
  Age: 57 Year
  Sex: Male

DRUGS (5)
  1. AVODART [Suspect]
     Indication: PROSTATOMEGALY
     Dosage: .5MG PER DAY
     Route: 048
     Dates: start: 20110605, end: 20110622
  2. ALLERGY MEDICATION [Concomitant]
  3. VITAMIN B-12 [Concomitant]
  4. VITAMIN [Concomitant]
  5. B6 [Concomitant]

REACTIONS (2)
  - NAUSEA [None]
  - ABDOMINAL PAIN UPPER [None]
